FAERS Safety Report 4937086-1 (Version None)
Quarter: 2006Q1

REPORT INFORMATION
  Report Type: 
  Country: None (occurrence: None)
  Receive Date: 20060307
  Receipt Date: 20060307
  Transmission Date: 20060701
  Serious: Yes (Hospitalization)
  Sender: FDA-Public Use
  Company Number: None

PATIENT
  Age: 80 Year
  Sex: Female
  Weight: 80.3 kg

DRUGS (4)
  1. IBUPROFEN [Suspect]
     Indication: OSTEOARTHRITIS
     Dosage: 600 MG  2-3X1D
  2. IBUPROFEN [Suspect]
     Indication: PAIN
     Dosage: 600 MG  2-3X1D
  3. LISINOPRIL AND HYDROCHLOROTHIAZIDE [Concomitant]
  4. LIBRIUM [Concomitant]

REACTIONS (1)
  - UPPER GASTROINTESTINAL HAEMORRHAGE [None]
